FAERS Safety Report 7468931-6 (Version None)
Quarter: 2011Q2

REPORT INFORMATION
  Report Type: 
  Country: None (occurrence: None)
  Receive Date: 20110428
  Receipt Date: 20110414
  Transmission Date: 20111010
  Serious: Yes (Hospitalization)
  Sender: FDA-Public Use
  Company Number: 2011-0595

PATIENT
  Age: 77 Year
  Sex: Male

DRUGS (1)
  1. SOMATULINE DEPOT [Suspect]
     Indication: NEUROENDOCRINE TUMOUR
     Dosage: 60MG (60 MG, 1 IN 4 WK), SUBCUTANEOUS
     Route: 058
     Dates: start: 20101220

REACTIONS (5)
  - MALAISE [None]
  - CHILLS [None]
  - INCORRECT STORAGE OF DRUG [None]
  - BLOOD PRESSURE INCREASED [None]
  - ABDOMINAL PAIN [None]
